FAERS Safety Report 7856878-2 (Version None)
Quarter: 2011Q4

REPORT INFORMATION
  Report Type: 
  Country: None (occurrence: None)
  Receive Date: 20111027
  Receipt Date: 20111019
  Transmission Date: 20120403
  Serious: Yes (Other)
  Sender: FDA-Public Use
  Company Number: US-AMGEN-TCS422019

PATIENT
  Age: 37 Year
  Sex: Female

DRUGS (13)
  1. PREVACID [Concomitant]
  2. FOLIC ACID [Concomitant]
  3. ENBREL [Suspect]
     Dosage: 25 MG, 2 TIMES/WK
     Route: 058
     Dates: start: 20090503
  4. TOPAMAX [Concomitant]
  5. ZYRTEC [Concomitant]
  6. ALLEGRA [Concomitant]
  7. CLOMID [Concomitant]
     Dosage: UNK UNK, UNK
     Dates: start: 20100201
  8. PREDNISONE [Concomitant]
  9. VOLTAREN [Concomitant]
  10. ENBREL [Suspect]
     Indication: JUVENILE ARTHRITIS
     Dosage: 25 MG, 2 TIMES/WK
     Route: 058
     Dates: start: 20090503
  11. CHORIONIC GONADOTROPIN [Concomitant]
     Dosage: UNK UNK, UNK
     Dates: start: 20100201
  12. DICLOFENAC SODIUM [Concomitant]
     Dosage: UNK UNK, UNK
     Dates: end: 20100701
  13. NSAID'S [Concomitant]

REACTIONS (2)
  - CEPHALO-PELVIC DISPROPORTION [None]
  - OVULATION DISORDER [None]
